FAERS Safety Report 6044119-0 (Version None)
Quarter: 2009Q1

REPORT INFORMATION
  Report Type: 
  Country: None (occurrence: None)
  Receive Date: 20090120
  Receipt Date: 20090115
  Transmission Date: 20090719
  Serious: Yes (Other)
  Sender: FDA-Public Use
  Company Number: GB-ASTRAZENECA-2009GB00284

PATIENT
  Sex: Female

DRUGS (1)
  1. QUETIAPINE FUMARATE [Suspect]
     Indication: BORDERLINE PERSONALITY DISORDER
     Dosage: 200MG
     Route: 048
     Dates: start: 20081206, end: 20081206

REACTIONS (3)
  - JAUNDICE [None]
  - PERIORBITAL OEDEMA [None]
  - WHEEZING [None]
